FAERS Safety Report 13756506 (Version 4)
Quarter: 2017Q3

REPORT INFORMATION
  Report Type: Report from Study
  Country: US (occurrence: BR)
  Receive Date: 20170714
  Receipt Date: 20170905
  Transmission Date: 20171127
  Serious: Yes (Death, Hospitalization)
  Sender: FDA-Public Use
  Company Number: US-SUNOVION-2017SUN003030

PATIENT
  Sex: Female
  Weight: 44 kg

DRUGS (5)
  1. BEROTEC [Concomitant]
     Active Substance: FENOTEROL HYDROBROMIDE
  2. GLYCOPYRROLATE. [Suspect]
     Active Substance: GLYCOPYRROLATE
     Indication: LUNG DISORDER
     Dosage: UNK
     Route: 065
  3. FORASEQ [Suspect]
     Active Substance: BUDESONIDE\FORMOTEROL FUMARATE
     Indication: LUNG DISORDER
     Dosage: 12/400 ?G, UNK
     Route: 065
  4. OXYGEN. [Concomitant]
     Active Substance: OXYGEN
  5. ATROVENT [Concomitant]
     Active Substance: IPRATROPIUM BROMIDE

REACTIONS (8)
  - Dyspnoea [Unknown]
  - Cardiac arrest [Fatal]
  - Influenza [Unknown]
  - Product use in unapproved indication [Unknown]
  - Respiratory failure [Fatal]
  - Respiratory arrest [Fatal]
  - Fall [Unknown]
  - Femur fracture [Unknown]
